FAERS Safety Report 5377078-4 (Version None)
Quarter: 2007Q3

REPORT INFORMATION
  Report Type: 
  Country: None (occurrence: None)
  Receive Date: 20070703
  Receipt Date: 20070623
  Transmission Date: 20080115
  Serious: Yes (Hospitalization)
  Sender: FDA-Public Use
  Company Number: US-KINGPHARMUSA00001-K200700799

PATIENT

DRUGS (2)
  1. CYTOMEL [Suspect]
     Route: 048
     Dates: start: 20070101, end: 20070601
  2. CYTOMEL [Suspect]
     Route: 048
     Dates: start: 20070601

REACTIONS (1)
  - JOINT SWELLING [None]
